FAERS Safety Report 10014591 (Version 1)
Quarter: 2014Q1

REPORT INFORMATION
  Report Type: Spontaneous
  Country: US (occurrence: US)
  Receive Date: 20140317
  Receipt Date: 20140317
  Transmission Date: 20141002
  Serious: Yes (Other)
  Sender: FDA-Public Use
  Company Number: US-BAYER-2014-036990

PATIENT
  Age: 80 Year
  Sex: Male
  Weight: 113 kg

DRUGS (8)
  1. BAYER GENUINE ASPIRIN ORIGINAL STRENGTH [Suspect]
     Indication: ISCHAEMIC HEART DISEASE PROPHYLAXIS
     Dosage: UNK UNK, QD
     Route: 048
  2. BENAZEPRIL [Concomitant]
  3. AMLODIPINE [Concomitant]
  4. ETODOLAC [Concomitant]
  5. GLYBURIDE [Concomitant]
  6. METFORMIN [Concomitant]
  7. PRAVASTATIN [Concomitant]
  8. ATENOLOL [Concomitant]

REACTIONS (2)
  - Haemorrhagic diathesis [Not Recovered/Not Resolved]
  - Increased tendency to bruise [Not Recovered/Not Resolved]
